FAERS Safety Report 19516807 (Version 1)
Quarter: 2021Q3

REPORT INFORMATION
  Report Type: Report from Study
  Country: IN (occurrence: IN)
  Receive Date: 20210711
  Receipt Date: 20210711
  Transmission Date: 20211014
  Serious: Yes (Death)
  Sender: FDA-Public Use
  Company Number: NVSC2019IN095653

PATIENT
  Age: 54 Year
  Sex: Male

DRUGS (2)
  1. MYFORTIC [Suspect]
     Active Substance: MYCOPHENOLATE SODIUM
     Indication: RENAL TRANSPLANT
     Dosage: 360 MG, BID
     Route: 048
     Dates: start: 20191024
  2. NEORAL [Suspect]
     Active Substance: CYCLOSPORINE
     Indication: RENAL TRANSPLANT
     Dosage: 225 MG, BID (225MG/250MG)
     Route: 048
     Dates: start: 20191024

REACTIONS (1)
  - Death [Fatal]

NARRATIVE: CASE EVENT DATE: 20191228
